FAERS Safety Report 9267866 (Version 1)
Quarter: 2013Q2

REPORT INFORMATION
  Report Type: Spontaneous
  Country: US (occurrence: US)
  Receive Date: 20130502
  Receipt Date: 20130502
  Transmission Date: 20140414
  Serious: Yes (Other)
  Sender: FDA-Public Use
  Company Number: US-ALEXION-A201201196

PATIENT
  Sex: Female

DRUGS (10)
  1. SOLIRIS 300MG [Suspect]
     Indication: PAROXYSMAL NOCTURNAL HAEMOGLOBINURIA
     Dosage: 600 MG, Q2W
     Route: 042
     Dates: start: 20110721
  2. SOLIRIS 300MG [Suspect]
     Dosage: 900 MG, Q2W
     Route: 042
     Dates: start: 2011
  3. LISINOPRIL [Concomitant]
     Indication: HYPERTENSION
     Dosage: 40 MG, QD
     Route: 048
  4. LASIX [Concomitant]
     Dosage: 80 MG, BID
     Route: 048
  5. LANTUS [Concomitant]
     Indication: DIABETES MELLITUS
     Dosage: UNK
     Route: 058
  6. POTASSIUM CHLORIDE [Concomitant]
     Dosage: 20 MG, QD
     Route: 048
  7. FERROUS SULFATE [Concomitant]
     Dosage: 325 MG, QD
     Route: 048
  8. AMLODIPINE [Concomitant]
     Indication: HYPERTENSION
     Dosage: UNK
     Route: 048
  9. METOPROLOL [Concomitant]
     Indication: HYPERTENSION
     Dosage: UNK
     Route: 048
  10. DIALYVITE [Concomitant]
     Dosage: UNK, 3 X DAY
     Route: 048

REACTIONS (3)
  - Diabetes mellitus inadequate control [Recovering/Resolving]
  - Visual impairment [Not Recovered/Not Resolved]
  - Muscle spasms [Unknown]
